FAERS Safety Report 19355391 (Version 1)
Quarter: 2021Q2

REPORT INFORMATION
  Report Type: Report from Study
  Country: US (occurrence: US)
  Receive Date: 20210602
  Receipt Date: 20210602
  Transmission Date: 20210717
  Serious: Yes (Hospitalization, Other)
  Sender: FDA-Public Use
  Company Number: US-GILEAD-2021-0533338

PATIENT
  Sex: Male

DRUGS (23)
  1. AZTREONAM LYSINE [Suspect]
     Active Substance: AZTREONAM LYSINE
     Indication: PNEUMONIA
     Dosage: 75 MG, TID, FOR 28 D ON AND 28 D OFF ALTERNATING WITH INHALED TOBRAMYCIN
     Route: 055
     Dates: start: 20170811
  2. CLONAZEPAM. [Concomitant]
     Active Substance: CLONAZEPAM
  3. DUONEB [Concomitant]
     Active Substance: ALBUTEROL SULFATE\IPRATROPIUM BROMIDE
  4. EPIDIOLEX [Concomitant]
     Active Substance: CANNABIDIOL
  5. FAMOTIDINE. [Concomitant]
     Active Substance: FAMOTIDINE
  6. FLUTICASONE. [Concomitant]
     Active Substance: FLUTICASONE
  7. TOBRAMYCIN. [Concomitant]
     Active Substance: TOBRAMYCIN
  8. LEVOCARNITINE. [Concomitant]
     Active Substance: LEVOCARNITINE
  9. OFLOXACIN. [Concomitant]
     Active Substance: OFLOXACIN
  10. ROBINUL [Concomitant]
     Active Substance: GLYCOPYRROLATE
  11. SINGULAIR [Concomitant]
     Active Substance: MONTELUKAST SODIUM
  12. IBUPROFEN. [Concomitant]
     Active Substance: IBUPROFEN
  13. PULMICORT TURBUHALER [Concomitant]
     Active Substance: BUDESONIDE
  14. TOPAMAX [Concomitant]
     Active Substance: TOPIRAMATE
  15. DIASTAT [DIAZEPAM] [Concomitant]
  16. PROVENTIL HFA [Concomitant]
     Active Substance: ALBUTEROL SULFATE
  17. SODIUM CHLORIDE. [Concomitant]
     Active Substance: SODIUM CHLORIDE
  18. AMOXICILLIN. [Concomitant]
     Active Substance: AMOXICILLIN
  19. KEPPRA [LEVETIRACETAM DIHYDROCHLORIDE] [Concomitant]
  20. CHILDRENS TYLENOL [Concomitant]
     Active Substance: ACETAMINOPHEN
  21. CLOBAZAM. [Concomitant]
     Active Substance: CLOBAZAM
  22. CULTURELLE KIDS CHEWABLES [Concomitant]
  23. DEPAKENE [VALPROATE SODIUM] [Concomitant]
     Active Substance: VALPROATE SODIUM

REACTIONS (3)
  - Off label use [Not Recovered/Not Resolved]
  - Hypothermia [Not Recovered/Not Resolved]
  - Seizure [Not Recovered/Not Resolved]
